FAERS Safety Report 6107558-5 (Version None)
Quarter: 2009Q1

REPORT INFORMATION
  Report Type: 
  Country: None (occurrence: None)
  Receive Date: 20090309
  Receipt Date: 20090225
  Transmission Date: 20090719
  Serious: Yes (Other)
  Sender: FDA-Public Use
  Company Number: PHEH2008US06989

PATIENT
  Sex: Female

DRUGS (6)
  1. RECLAST [Suspect]
     Indication: OSTEOPOROSIS
     Dosage: UNK ONCE YEARLY
     Dates: start: 20080715, end: 20080715
  2. MIACALCIN [Suspect]
  3. BONIVA [Suspect]
  4. FOSAMAX [Suspect]
  5. CALCIUM [Concomitant]
  6. VITAMIN D [Concomitant]

REACTIONS (12)
  - ARTHRALGIA [None]
  - BACK PAIN [None]
  - BLOOD UREA INCREASED [None]
  - BONE PAIN [None]
  - GLOMERULAR FILTRATION RATE DECREASED [None]
  - MYALGIA [None]
  - OSTEOARTHRITIS [None]
  - PAIN [None]
  - PAIN IN EXTREMITY [None]
  - RHEUMATOID ARTHRITIS [None]
  - ROTATOR CUFF SYNDROME [None]
  - TENDONITIS [None]
